FAERS Safety Report 20309578 (Version 1)
Quarter: 2022Q1

REPORT INFORMATION
  Report Type: Report from Study
  Country: IN (occurrence: IN)
  Receive Date: 20220107
  Receipt Date: 20220107
  Transmission Date: 20220423
  Serious: Yes (Death)
  Sender: FDA-Public Use
  Company Number: IN-BIOGEN-2022BI01083187

PATIENT
  Sex: Male

DRUGS (1)
  1. SPINRAZA [Suspect]
     Active Substance: NUSINERSEN
     Indication: Spinal muscular atrophy
     Dosage: 4TH DOSE ON 09 DEC 2021
     Route: 065

REACTIONS (2)
  - Sudden death [Fatal]
  - Pyrexia [Fatal]

NARRATIVE: CASE EVENT DATE: 20211213
